FAERS Safety Report 9398716 (Version 1)
Quarter: 2013Q3

REPORT INFORMATION
  Report Type: Spontaneous
  Country: US (occurrence: US)
  Receive Date: 20130712
  Receipt Date: 20130712
  Transmission Date: 20140515
  Serious: Yes (Hospitalization, Disabling, Other)
  Sender: FDA-Public Use
  Company Number: US-NAPPMUNDI-USA-2010-0044568

PATIENT
  Sex: Male

DRUGS (8)
  1. OXYCONTIN TABLETS [Suspect]
     Indication: PAIN
     Dosage: UNK
     Route: 048
     Dates: start: 200210
  2. OXYCONTIN TABLETS [Suspect]
     Indication: ARTHRALGIA
  3. OXYCONTIN TABLETS [Suspect]
     Indication: HEADACHE
  4. VALIUM /00017001/ [Suspect]
     Indication: PAIN
     Route: 065
  5. VALIUM /00017001/ [Suspect]
     Indication: ARTHRALGIA
  6. VALIUM /00017001/ [Suspect]
     Indication: HEADACHE
  7. PERCOCET                           /00867901/ [Concomitant]
     Indication: CHEST PAIN
     Route: 048
  8. MORPHINE [Concomitant]
     Indication: CHEST PAIN
     Route: 065

REACTIONS (23)
  - Drug dependence [Unknown]
  - Drug abuse [Unknown]
  - Drug withdrawal syndrome [Unknown]
  - Mental disability [Unknown]
  - Suicidal ideation [Unknown]
  - Suicidal behaviour [Unknown]
  - Affective disorder [Unknown]
  - Insomnia [Unknown]
  - Anxiety [Unknown]
  - Emotional disorder [Unknown]
  - Anhedonia [Unknown]
  - Pain [Unknown]
  - Major depression [Unknown]
  - Panic attack [Unknown]
  - Agoraphobia [Unknown]
  - Diarrhoea [Unknown]
  - Nausea [Unknown]
  - Vomiting [Unknown]
  - Disorientation [Unknown]
  - Somatisation disorder [Unknown]
  - Drug ineffective [Unknown]
  - Memory impairment [Unknown]
  - Aphasia [Unknown]
